FAERS Safety Report 10460957 (Version 2)
Quarter: 2014Q3

REPORT INFORMATION
  Report Type: Spontaneous
  Country: US (occurrence: US)
  Receive Date: 20140918
  Receipt Date: 20140918
  Transmission Date: 20150326
  Serious: No
  Sender: FDA-Public Use
  Company Number: 2014SP004247

PATIENT
  Sex: Female

DRUGS (3)
  1. NIFEDIPINE. [Suspect]
     Active Substance: NIFEDIPINE
  2. DOXYCYCLINE. [Suspect]
     Active Substance: DOXYCYCLINE
  3. CODEINE [Suspect]
     Active Substance: CODEINE
     Indication: PRODUCT USED FOR UNKNOWN INDICATION
     Dates: start: 20140614

REACTIONS (3)
  - Nausea [Unknown]
  - Drug hypersensitivity [Unknown]
  - Vomiting [Unknown]
